FAERS Safety Report 6378733-X (Version None)
Quarter: 2009Q3

REPORT INFORMATION
  Report Type: 
  Country: None (occurrence: None)
  Receive Date: 20090921
  Receipt Date: 20090910
  Transmission Date: 20100115
  Serious: Yes (Hospitalization)
  Sender: FDA-Public Use
  Company Number: 0808-531

PATIENT
  Age: 61 Year
  Sex: Female
  Weight: 86.1834 kg

DRUGS (7)
  1. ARCALYST [Suspect]
     Indication: FAMILIAL COLD AUTOINFLAMMATORY SYNDROME
     Dosage: 160 MG, QWK, SUBCUTANEOUS ; 320 MG, QWK, SUBCUTANEOUS
     Route: 058
     Dates: start: 20080401, end: 20080601
  2. FEXOFENADINE [Concomitant]
  3. FOSAMAX [Concomitant]
  4. THYROID TAB [Concomitant]
  5. PREVACID [Concomitant]
  6. FLONASE [Concomitant]
  7. CALCIUM CITRATE [Concomitant]

REACTIONS (3)
  - CLOSTRIDIUM DIFFICILE COLITIS [None]
  - DIVERTICULITIS [None]
  - ORAL CANDIDIASIS [None]
